FAERS Safety Report 23188783 (Version 1)
Quarter: 2023Q4

REPORT INFORMATION
  Report Type: Spontaneous
  Country: US (occurrence: US)
  Receive Date: 20231115
  Receipt Date: 20231115
  Transmission Date: 20240110
  Serious: No
  Sender: FDA-Public Use
  Company Number: US-WOODWARD-2023-US-007150

PATIENT
  Age: 60 Year
  Sex: Female
  Weight: 88.45 kg

DRUGS (3)
  1. LOVAZA [Suspect]
     Active Substance: OMEGA-3-ACID ETHYL ESTERS
     Indication: Blood cholesterol increased
     Dosage: 4 CAPSULES PER DAY
     Route: 048
     Dates: start: 201803
  2. FAMOTIDINE [Concomitant]
     Active Substance: FAMOTIDINE
  3. PRILOSEC [Concomitant]
     Active Substance: OMEPRAZOLE MAGNESIUM

REACTIONS (1)
  - Nausea [Recovered/Resolved]

NARRATIVE: CASE EVENT DATE: 20230307
